FAERS Safety Report 9014174 (Version 1)
Quarter: 2013Q1

REPORT INFORMATION
  Report Type: Spontaneous
  Country: GB (occurrence: GB)
  Receive Date: 20130115
  Receipt Date: 20130115
  Transmission Date: 20140127
  Serious: Yes (Hospitalization)
  Sender: FDA-Public Use
  Company Number: PHHY2013GB002679

PATIENT
  Age: 41 Year
  Sex: Female

DRUGS (7)
  1. CEFTRIAXONE [Suspect]
     Route: 042
     Dates: start: 20120504
  2. CO-TRIMOXAZOLE [Suspect]
     Indication: PNEUMOCYSTIS JIROVECII PNEUMONIA
     Route: 042
     Dates: start: 20120504
  3. CLARITHROMYCIN [Concomitant]
  4. AMOXICILLIN [Concomitant]
  5. FERROUS SULPHATE [Concomitant]
  6. LORAZEPAM [Concomitant]
  7. OLANZAPINE [Concomitant]

REACTIONS (3)
  - Acute psychosis [Recovered/Resolved]
  - Confusional state [Recovered/Resolved]
  - Aggression [Recovered/Resolved]
